FAERS Safety Report 5905424-9 (Version None)
Quarter: 2008Q4

REPORT INFORMATION
  Report Type: 
  Country: None (occurrence: None)
  Receive Date: 20081002
  Receipt Date: 20081001
  Transmission Date: 20090506
  Serious: Yes (Hospitalization)
  Sender: FDA-Public Use
  Company Number: PHEH1996US07375

PATIENT
  Sex: Male
  Weight: 93.6 kg

DRUGS (7)
  1. SANDIMMUNE [Suspect]
     Route: 048
     Dates: start: 19960109
  2. SANDIMMUNE [Suspect]
     Route: 048
     Dates: start: 19960109
  3. INSULIN [Concomitant]
  4. PROCARDIA XL [Concomitant]
  5. LOPID [Concomitant]
  6. LASIX [Concomitant]
  7. PREDNISONE [Concomitant]

REACTIONS (2)
  - PILONIDAL CYST [None]
  - SKIN DISORDER [None]
